FAERS Safety Report 22614313 (Version 1)
Quarter: 2023Q2

REPORT INFORMATION
  Report Type: Other
  Country: JP (occurrence: JP)
  Receive Date: 20230619
  Receipt Date: 20230619
  Transmission Date: 20230722
  Serious: Yes (Death, Other)
  Sender: FDA-Public Use
  Company Number: JP-CHUGAI-2023021511

PATIENT
  Age: 70 Year
  Sex: Male

DRUGS (4)
  1. CELLCEPT [Suspect]
     Active Substance: MYCOPHENOLATE MOFETIL
     Indication: Prophylaxis against transplant rejection
     Dosage: UNK
     Route: 048
  2. TACROLIMUS [Concomitant]
     Active Substance: TACROLIMUS
     Dosage: UNK
     Route: 065
  3. METHYLPREDNISOLONE [Concomitant]
     Active Substance: METHYLPREDNISOLONE
     Dosage: UNK
     Route: 065
  4. BASILIXIMAB [Concomitant]
     Active Substance: BASILIXIMAB
     Dosage: UNK
     Route: 065

REACTIONS (8)
  - Renal abscess [Fatal]
  - Diffuse alveolar damage [Fatal]
  - Septic embolus [Fatal]
  - Splenic infarction [Unknown]
  - Shunt infection [Unknown]
  - Cerebral infarction [Unknown]
  - Pneumonia [Unknown]
  - Staphylococcal infection [Unknown]
